FAERS Safety Report 9056068 (Version 1)
Quarter: 2013Q1

REPORT INFORMATION
  Report Type: Spontaneous
  Country: FR (occurrence: FR)
  Receive Date: 20130205
  Receipt Date: 20130205
  Transmission Date: 20140127
  Serious: Yes (Other)
  Sender: FDA-Public Use
  Company Number: FR-BRISTOL-MYERS SQUIBB COMPANY-17323486

PATIENT
  Age: 69 Year
  Sex: Male

DRUGS (11)
  1. ETOPOPHOS [Suspect]
     Indication: SMALL CELL LUNG CANCER
     Route: 042
     Dates: start: 20121112, end: 20121113
  2. CARBOPLATINE [Suspect]
     Indication: SMALL CELL LUNG CANCER
     Dosage: CYCLE 4:AUC4
     Route: 042
     Dates: start: 20121112
  3. OXYCONTIN [Concomitant]
  4. DEBRIDAT [Concomitant]
  5. LYRICA [Concomitant]
  6. SERESTA [Concomitant]
  7. SOLU-MEDROL [Concomitant]
  8. PARACETAMOL [Concomitant]
  9. STILNOX [Concomitant]
  10. MECIR [Concomitant]
  11. EMEND [Concomitant]

REACTIONS (1)
  - Encephalopathy [Recovered/Resolved]
